FAERS Safety Report 4292670-6 (Version None)
Quarter: 2004Q1

REPORT INFORMATION
  Report Type: 
  Country: None (occurrence: None)
  Receive Date: 20040126
  Receipt Date: 20031003
  Transmission Date: 20041129
  Serious: No
  Sender: FDA-Public Use
  Company Number: USA031049043

PATIENT
  Age: 81 Year
  Sex: Female
  Weight: 50 kg

DRUGS (5)
  1. FORTEO [Suspect]
     Indication: FRACTURE
     Dates: start: 20030506
  2. PROZAC [Suspect]
  3. DIGOXIN [Concomitant]
  4. CLONAZEPAM [Concomitant]
  5. LASIX [Concomitant]

REACTIONS (3)
  - DERMATITIS EXFOLIATIVE [None]
  - RASH [None]
  - RASH PRURITIC [None]
